FAERS Safety Report 4818468-5 (Version None)
Quarter: 2005Q4

REPORT INFORMATION
  Report Type: 
  Country: None (occurrence: None)
  Receive Date: 20051031
  Receipt Date: 20051031
  Transmission Date: 20060501
  Serious: Yes (Hospitalization)
  Sender: FDA-Public Use
  Company Number: None

PATIENT
  Age: 92 Year
  Sex: Male
  Weight: 59.4212 kg

DRUGS (1)
  1. BACTRIM [Suspect]
     Indication: INFECTION
     Dosage: WK

REACTIONS (1)
  - NEPHRITIS INTERSTITIAL [None]
